FAERS Safety Report 14884362 (Version 1)
Quarter: 2018Q2

REPORT INFORMATION
  Report Type: Spontaneous
  Country: US (occurrence: US)
  Receive Date: 20180511
  Receipt Date: 20180511
  Transmission Date: 20180711
  Serious: No
  Sender: FDA-Public Use
  Company Number: US-TEVA-2018-US-890819

PATIENT
  Sex: Female

DRUGS (1)
  1. AZITHROMYCIN ANHYDROUS. [Suspect]
     Active Substance: AZITHROMYCIN ANHYDROUS
     Indication: INFECTION
     Route: 048
     Dates: start: 20180430

REACTIONS (6)
  - Nausea [Unknown]
  - Pyrexia [Unknown]
  - Vomiting [Unknown]
  - Abdominal pain lower [Unknown]
  - Chromaturia [Unknown]
  - Diarrhoea [Unknown]
